FAERS Safety Report 4702166-2 (Version None)
Quarter: 2005Q2

REPORT INFORMATION
  Report Type: 
  Country: None (occurrence: None)
  Receive Date: 20050629
  Receipt Date: 20050614
  Transmission Date: 20051028
  Serious: Yes (Death, Life-Threatening, Hospitalization, Other)
  Sender: FDA-Public Use
  Company Number: 200511547EU

PATIENT
  Age: 38 Year
  Sex: Female

DRUGS (13)
  1. LANTUS [Suspect]
     Indication: DIABETES MELLITUS
     Route: 058
     Dates: end: 20050519
  2. INSULATARD [Concomitant]
     Indication: DIABETES MELLITUS
  3. HUMALOG [Concomitant]
  4. CALCIUM ACETATE [Concomitant]
  5. ZOCOR [Concomitant]
  6. REDOMEX [Concomitant]
  7. NEORECORMON [Concomitant]
  8. CLONAZEPAM [Concomitant]
  9. MEDROL [Concomitant]
  10. NEORAL [Concomitant]
  11. SELOKEN [Concomitant]
  12. CELLCEPT [Concomitant]
  13. EUTHYROX [Concomitant]

REACTIONS (3)
  - CARDIAC DISORDER [None]
  - DRUG LEVEL INCREASED [None]
  - HYPOGLYCAEMIA [None]
